FAERS Safety Report 5698252-3 (Version None)
Quarter: 2008Q2

REPORT INFORMATION
  Report Type: 
  Country: None (occurrence: None)
  Receive Date: 20080408
  Receipt Date: 20080328
  Transmission Date: 20081010
  Serious: Yes (Other)
  Sender: FDA-Public Use
  Company Number: US-PFIZER INC-2008028238

PATIENT
  Sex: Female
  Weight: 91 kg

DRUGS (1)
  1. DEPO-PROVERA SUSPENSION/INJ [Suspect]
     Indication: CONTRACEPTION
     Dates: start: 20070901, end: 20070901

REACTIONS (8)
  - ABDOMINAL PAIN [None]
  - AMENORRHOEA [None]
  - INSOMNIA [None]
  - MOOD ALTERED [None]
  - NAUSEA [None]
  - OVERDOSE [None]
  - VOMITING [None]
  - WEIGHT DECREASED [None]
